FAERS Safety Report 5419413-4 (Version None)
Quarter: 2007Q3

REPORT INFORMATION
  Report Type: 
  Country: None (occurrence: None)
  Receive Date: 20070820
  Receipt Date: 20070815
  Transmission Date: 20080115
  Serious: Yes (Other)
  Sender: FDA-Public Use
  Company Number: A0671236A

PATIENT
  Age: 18 Year
  Sex: Female

DRUGS (3)
  1. WELLBUTRIN SR [Suspect]
     Indication: DRUG USE FOR UNKNOWN INDICATION
     Dosage: 150MG PER DAY
  2. PROZAC [Suspect]
     Indication: DRUG USE FOR UNKNOWN INDICATION
     Dosage: 20MG PER DAY
  3. TRICYCLEN [Concomitant]

REACTIONS (3)
  - CONVULSION [None]
  - TONGUE DISORDER [None]
  - TREMOR [None]
